FAERS Safety Report 17341179 (Version 1)
Quarter: 2020Q1

REPORT INFORMATION
  Report Type: Spontaneous
  Country: US (occurrence: US)
  Receive Date: 20200129
  Receipt Date: 20200129
  Transmission Date: 20200409
  Serious: No
  Sender: FDA-Public Use
  Company Number: US-ALLERGAN-1914621US

PATIENT

DRUGS (1)
  1. BOTOX COSMETIC [Suspect]
     Active Substance: ONABOTULINUMTOXINA
     Indication: PRODUCT USED FOR UNKNOWN INDICATION
     Dosage: UNK UNITS, SINGLE
     Route: 030

REACTIONS (4)
  - Headache [Recovering/Resolving]
  - Product substitution issue [Unknown]
  - Product measured potency issue [Unknown]
  - Drug ineffective [Unknown]
